FAERS Safety Report 9686115 (Version 2)
Quarter: 2014Q2

REPORT INFORMATION
  Report Type: Spontaneous
  Country: PL (occurrence: PL)
  Receive Date: 20131113
  Receipt Date: 20140407
  Transmission Date: 20141212
  Serious: Yes (Death, Life-Threatening, Hospitalization, Other)
  Sender: FDA-Public Use
  Company Number: PL-ACTAVIS-2013-20115

PATIENT
  Age: 23 Year
  Sex: Male

DRUGS (2)
  1. CARBAMAZEPINE (UNKNOWN) [Suspect]
     Indication: COMPLETED SUICIDE
     Dosage: UNK
     Route: 065
     Dates: start: 2009
  2. CARBAMAZEPINE (UNKNOWN) [Suspect]
     Indication: INTENTIONAL OVERDOSE

REACTIONS (11)
  - Brain death [Fatal]
  - Completed suicide [Fatal]
  - Toxicity to various agents [Fatal]
  - Cardiac arrest [Recovered/Resolved]
  - Respiratory failure [Unknown]
  - Circulatory collapse [Unknown]
  - Convulsion [Unknown]
  - Atrioventricular block complete [Unknown]
  - Body temperature increased [Unknown]
  - Polyuria [Unknown]
  - Intentional overdose [Fatal]
